FAERS Safety Report 6403365-4 (Version None)
Quarter: 2009Q4

REPORT INFORMATION
  Report Type: 
  Country: None (occurrence: None)
  Receive Date: 20091016
  Receipt Date: 20091005
  Transmission Date: 20100525
  Serious: Yes (Death)
  Sender: FDA-Public Use
  Company Number: US-NOVOPROD-292466

PATIENT

DRUGS (2)
  1. NOVOSEVEN [Suspect]
     Indication: PROPHYLAXIS
     Dosage: 90 UG/KG, UNK
     Route: 042
  2. NOVOSEVEN [Suspect]
     Indication: COAGULOPATHY

REACTIONS (1)
  - MYOCARDIAL INFARCTION [None]
